FAERS Safety Report 25577361 (Version 3)
Quarter: 2025Q3

REPORT INFORMATION
  Report Type: Spontaneous
  Country: US (occurrence: US)
  Receive Date: 20250718
  Receipt Date: 20250731
  Transmission Date: 20251020
  Serious: Yes (Life-Threatening, Hospitalization)
  Sender: PFIZER
  Company Number: US-PFIZER INC-PV202500083939

PATIENT
  Age: 34 Year
  Sex: Male
  Weight: 66.6 kg

DRUGS (1)
  1. FENTANYL CITRATE [Suspect]
     Active Substance: FENTANYL CITRATE
     Route: 042

REACTIONS (3)
  - Overdose [Recovered/Resolved]
  - Endocarditis [Recovered/Resolved]
  - Pulmonary embolism [Recovered/Resolved]
